FAERS Safety Report 12655764 (Version 1)
Quarter: 2016Q3

REPORT INFORMATION
  Report Type: Spontaneous
  Country: US (occurrence: US)
  Receive Date: 20160816
  Receipt Date: 20160816
  Transmission Date: 20161109
  Serious: No
  Sender: FDA-Public Use
  Company Number: US-ROCHE-1689701

PATIENT
  Sex: Female

DRUGS (2)
  1. EVAMIST [Concomitant]
     Active Substance: ESTRADIOL
  2. PEGASYS [Suspect]
     Active Substance: PEGINTERFERON ALFA-2A
     Indication: POLYCYTHAEMIA VERA
     Dosage: EVERY OTHER WEEK
     Route: 065

REACTIONS (4)
  - Skin exfoliation [Unknown]
  - Product quality issue [Unknown]
  - Scab [Unknown]
  - Eyelid oedema [Unknown]
